APPROVED DRUG PRODUCT: HETLIOZ LQ
Active Ingredient: TASIMELTEON
Strength: 4MG/ML
Dosage Form/Route: SUSPENSION;ORAL
Application: N214517 | Product #001
Applicant: VANDA PHARMACEUTICALS INC
Approved: Dec 1, 2020 | RLD: Yes | RS: Yes | Type: RX

PATENTS:
Patent 11141400 | Expires: Oct 10, 2034
Patent 10980770 | Expires: Jan 25, 2033
Patent 11266622 | Expires: Aug 29, 2035
Patent 11633377 | Expires: Jan 25, 2033
Patent 10149829 | Expires: Jan 25, 2033
Patent 9730910 | Expires: May 17, 2034
Patent 9539234 | Expires: Jan 25, 2033
Patent 10610510 | Expires: Jan 25, 2033
Patent 10376487 | Expires: Jul 27, 2035
Patent 10179119 | Expires: Aug 29, 2035
Patent 10610511 | Expires: Oct 10, 2034
Patent 12447141 | Expires: Dec 11, 2040
Patent 12201604 | Expires: Jan 25, 2033
Patent 11759446 | Expires: Feb 21, 2041
Patent 11786502 | Expires: Oct 10, 2034
Patent 11833130 | Expires: Jan 25, 2033
Patent 11850229 | Expires: Jan 25, 2033
Patent 11918556 | Expires: Apr 7, 2033
Patent 11826339 | Expires: Jan 25, 2033
Patent 11918557 | Expires: Jan 25, 2033
Patent 11285129 | Expires: Jan 25, 2033
Patent 12049457 | Expires: Feb 12, 2035
Patent 10829465 | Expires: Feb 12, 2035
Patent 10071977 | Expires: Feb 12, 2035
Patent 11202770 | Expires: Dec 11, 2040
Patent 11566011 | Expires: Feb 12, 2035
Patent 11760740 | Expires: Feb 12, 2035

EXCLUSIVITY:
Code: ODE-329 | Date: Dec 1, 2027